FAERS Safety Report 14206518 (Version 1)
Quarter: 2017Q4

REPORT INFORMATION
  Report Type: Spontaneous
  Country: US (occurrence: US)
  Receive Date: 20171120
  Receipt Date: 20171120
  Transmission Date: 20180321
  Serious: No
  Sender: FDA-Public Use
  Company Number: US-CELGENEUS-USA-20171104306

PATIENT
  Age: 56 Year
  Sex: Male

DRUGS (2)
  1. ABRAXANE [Suspect]
     Active Substance: PACLITAXEL
     Indication: OROPHARYNGEAL LYMPHOEPITHELIOMA
     Route: 041
     Dates: start: 201401, end: 201502
  2. ABRAXANE [Suspect]
     Active Substance: PACLITAXEL
     Indication: OFF LABEL USE

REACTIONS (3)
  - Metastases to liver [Unknown]
  - Toxicity to various agents [Unknown]
  - Lung neoplasm malignant [Unknown]

NARRATIVE: CASE EVENT DATE: 201409
